FAERS Safety Report 7945696-2 (Version None)
Quarter: 2011Q4

REPORT INFORMATION
  Report Type: 
  Country: None (occurrence: None)
  Receive Date: 20111129
  Receipt Date: 20111123
  Transmission Date: 20120403
  Serious: Yes (Other)
  Sender: FDA-Public Use
  Company Number: US-PFIZER INC-2011047363

PATIENT
  Sex: Female

DRUGS (6)
  1. LIPITOR [Suspect]
     Dosage: UNK
  2. PACERONE [Concomitant]
     Dosage: UNK
  3. HYZAAR [Concomitant]
     Dosage: UNK
  4. PRADAXA [Concomitant]
     Dosage: UNK
  5. TOPROL-XL [Concomitant]
     Dosage: UNK
  6. CORDARONE [Suspect]
     Dosage: UNK

REACTIONS (4)
  - MACULAR DEGENERATION [None]
  - ARTHRALGIA [None]
  - CEREBRAL ATROPHY [None]
  - MYALGIA [None]
